FAERS Safety Report 25957343 (Version 1)
Quarter: 2025Q4

REPORT INFORMATION
  Report Type: Spontaneous
  Country: US (occurrence: US)
  Receive Date: 20251024
  Receipt Date: 20251024
  Transmission Date: 20260117
  Serious: No
  Sender: SEPTODONT
  Company Number: US-SEPTODONT-2024019325

PATIENT
  Age: 21 Year
  Sex: Male
  Weight: 65 kg

DRUGS (1)
  1. SEPTOCAINE [Suspect]
     Active Substance: ARTICAINE HYDROCHLORIDE\EPINEPHRINE BITARTRATE
     Indication: Dental local anaesthesia
     Dosage: -	3 CARPULES OF 4% SEPTOCAINE WITH 1:100,000 EPINEPHRINE WERE UTILIZED DURING A 3-HOUR APPOINTMENT
     Route: 065

REACTIONS (2)
  - Drug effect less than expected [Unknown]
  - Procedural pain [Unknown]
